FAERS Safety Report 7675075-7 (Version None)
Quarter: 2011Q3

REPORT INFORMATION
  Report Type: 
  Country: None (occurrence: None)
  Receive Date: 20110810
  Receipt Date: 20110808
  Transmission Date: 20111222
  Serious: Yes (Death, Hospitalization)
  Sender: FDA-Public Use
  Company Number: US-MERCK-1104USA02927

PATIENT
  Age: 65 Year
  Sex: Female

DRUGS (1)
  1. FOSAMAX [Suspect]
     Indication: OSTEOPOROSIS
     Route: 048
     Dates: start: 20000901, end: 20090501

REACTIONS (9)
  - FEMUR FRACTURE [None]
  - SEPSIS [None]
  - ENDOCARDITIS BACTERIAL [None]
  - PAIN [None]
  - ANXIETY [None]
  - LIVER DISORDER [None]
  - NERVOUS SYSTEM DISORDER [None]
  - ADVERSE EVENT [None]
  - HEPATIC CIRRHOSIS [None]
